FAERS Safety Report 8477107-5 (Version None)
Quarter: 2012Q2

REPORT INFORMATION
  Report Type: 
  Country: None (occurrence: None)
  Receive Date: 20120629
  Receipt Date: 20120625
  Transmission Date: 20120825
  Serious: No
  Sender: FDA-Public Use
  Company Number: US-PFIZER INC-2012152548

PATIENT
  Age: 95 Year
  Sex: Female

DRUGS (3)
  1. NEURONTIN [Suspect]
     Indication: PAIN IN EXTREMITY
     Dosage: UNK
  2. FENTANYL-100 [Suspect]
     Dosage: UNK
  3. NEURONTIN [Suspect]

REACTIONS (4)
  - HEART RATE DECREASED [None]
  - PAIN [None]
  - DRUG INEFFECTIVE [None]
  - HYPOTENSION [None]
